FAERS Safety Report 6279192-8 (Version None)
Quarter: 2009Q3

REPORT INFORMATION
  Report Type: 
  Country: None (occurrence: None)
  Receive Date: 20090723
  Receipt Date: 20080805
  Transmission Date: 20100115
  Serious: No
  Sender: FDA-Public Use
  Company Number: US-AMGEN-KDL299827

PATIENT

DRUGS (1)
  1. PROCRIT [Suspect]
     Indication: PRE-EXISTING DISEASE
     Dates: end: 20080601

REACTIONS (3)
  - DISEASE PROGRESSION [None]
  - FALL [None]
  - POSTURAL ORTHOSTATIC TACHYCARDIA SYNDROME [None]
